FAERS Safety Report 5747871-4 (Version None)
Quarter: 2008Q2

REPORT INFORMATION
  Report Type: 
  Country: None (occurrence: None)
  Receive Date: 20080523
  Receipt Date: 20080519
  Transmission Date: 20081010
  Serious: Yes (Hospitalization)
  Sender: FDA-Public Use
  Company Number: NL-MERCK-0805NLD00005

PATIENT
  Age: 76 Year
  Sex: Female

DRUGS (4)
  1. COZAAR [Suspect]
     Indication: HYPERTENSION
     Route: 048
     Dates: start: 19970722
  2. COZAAR [Suspect]
     Route: 048
     Dates: end: 20080512
  3. COZAAR [Suspect]
     Route: 048
     Dates: start: 20080513
  4. TIMOLOL MALEATE [Concomitant]
     Indication: INTRAOCULAR PRESSURE TEST
     Route: 047

REACTIONS (2)
  - CEREBROVASCULAR ACCIDENT [None]
  - TRANSIENT ISCHAEMIC ATTACK [None]
